FAERS Safety Report 9261889 (Version 2)
Quarter: 2013Q2

REPORT INFORMATION
  Report Type: Report from Study
  Country: BR (occurrence: BR)
  Receive Date: 20130429
  Receipt Date: 20130502
  Transmission Date: 20140414
  Serious: Yes (Other)
  Sender: FDA-Public Use
  Company Number: BR-ABBOTT-13P-020-1081064-00

PATIENT
  Age: 31 Year
  Sex: Female
  Weight: 87 kg

DRUGS (8)
  1. HUMIRA [Suspect]
     Indication: RHEUMATOID ARTHRITIS
     Route: 058
     Dates: start: 201210
  2. METHOTREXATE [Concomitant]
     Indication: ARTHRITIS
     Route: 048
  3. METHOTREXATE [Concomitant]
     Indication: PROPHYLAXIS
  4. METHOTREXATE [Concomitant]
     Indication: ARTHROPATHY
  5. FOLIC ACID [Concomitant]
     Indication: PRODUCT USED FOR UNKNOWN INDICATION
     Route: 048
  6. PREDNISONE [Concomitant]
     Indication: PAIN
     Dosage: IN THE MORNING
     Route: 048
  7. ATENOLOL [Concomitant]
     Indication: BLOOD PRESSURE
     Route: 048
     Dates: start: 2010
  8. LOSARTAN [Concomitant]
     Indication: BLOOD PRESSURE
     Route: 048

REACTIONS (2)
  - Nephrolithiasis [Recovered/Resolved]
  - Renal pain [Recovered/Resolved]
